FAERS Safety Report 20483482 (Version 2)
Quarter: 2022Q1

REPORT INFORMATION
  Report Type: Spontaneous
  Country: FR (occurrence: FR)
  Receive Date: 20220217
  Receipt Date: 20220222
  Transmission Date: 20220423
  Serious: Yes (Other)
  Sender: FDA-Public Use
  Company Number: FR-LAV-2021-00175

PATIENT
  Age: 72 Year
  Sex: Male

DRUGS (15)
  1. FENTANYL [Suspect]
     Active Substance: FENTANYL
     Indication: Neck pain
     Route: 062
     Dates: end: 2020
  2. FENTANYL [Suspect]
     Active Substance: FENTANYL
     Route: 062
     Dates: start: 2018
  3. DULOXETINE [Suspect]
     Active Substance: DULOXETINE
     Indication: Neck pain
     Route: 048
     Dates: start: 2021
  4. PREGABALIN [Suspect]
     Active Substance: PREGABALIN
     Indication: Neck pain
     Route: 048
     Dates: start: 2020, end: 2021
  5. PREGABALIN [Suspect]
     Active Substance: PREGABALIN
     Route: 048
     Dates: start: 20200824, end: 2021
  6. DEXKETOPROFEN\TRAMADOL [Concomitant]
     Active Substance: DEXKETOPROFEN\TRAMADOL
     Indication: Back pain
     Dosage: 2 TIMES PER YEAR MAXIMUM
  7. ZOLMITRIPTAN [Concomitant]
     Active Substance: ZOLMITRIPTAN
     Indication: Migraine
     Dosage: 2 TO 3 TABLETS DAILY FOR 3 DAYS AT MAXIMUM ABOUT 2 TO 3 TIMES A YEAR
  8. ALPRAZOLAM [Concomitant]
     Active Substance: ALPRAZOLAM
  9. ALPRAZOLAM [Concomitant]
     Active Substance: ALPRAZOLAM
     Route: 065
  10. IBUPROFEN [Concomitant]
     Active Substance: IBUPROFEN
     Indication: Pain
  11. OMEPRAZOLE [Concomitant]
     Active Substance: OMEPRAZOLE
     Indication: Dyspepsia
     Dosage: EVERY MORNING, FOR ABOUT 10 YEARS
  12. ACETAMINOPHEN [Concomitant]
     Active Substance: ACETAMINOPHEN
     Indication: Pain
     Dosage: OCCASIONAL USE
  13. COCODAMOL [Concomitant]
     Active Substance: ACETAMINOPHEN\CODEINE PHOSPHATE
     Indication: Pain
  14. XARELTO [Concomitant]
     Active Substance: RIVAROXABAN
  15. BETAHISTINE [Concomitant]
     Active Substance: BETAHISTINE
     Dosage: 1 TO 3 DFS PER DAY, WITH 2 INTERRUPTIONS

REACTIONS (7)
  - Disturbance in attention [Recovering/Resolving]
  - Antisocial behaviour [Recovering/Resolving]
  - Lethargy [Recovering/Resolving]
  - Visual impairment [Recovering/Resolving]
  - Deep vein thrombosis [Recovered/Resolved]
  - Vertigo [Recovering/Resolving]
  - Drug withdrawal syndrome [Recovered/Resolved]

NARRATIVE: CASE EVENT DATE: 20200101
